FAERS Safety Report 10180657 (Version 1)
Quarter: 2014Q2

REPORT INFORMATION
  Report Type: Spontaneous
  Country: US (occurrence: US)
  Receive Date: 20140519
  Receipt Date: 20140519
  Transmission Date: 20141212
  Serious: No
  Sender: FDA-Public Use
  Company Number: US-AMGEN INC.-USASP2014021048

PATIENT
  Sex: Female

DRUGS (6)
  1. PROLIA [Suspect]
     Indication: OSTEOPOROSIS POSTMENOPAUSAL
     Dosage: 30 MG, UNK
     Route: 065
     Dates: start: 20140321
  2. ZOLOFT [Concomitant]
     Dosage: 12.5 MG AT NIGHT
  3. QNASL [Concomitant]
  4. FISH OIL [Concomitant]
  5. CALCIUM + VITAMIN D                /01483701/ [Concomitant]
  6. COQ10                              /00517201/ [Concomitant]

REACTIONS (5)
  - Thirst [Unknown]
  - Swollen tongue [Unknown]
  - Dyspnoea [Unknown]
  - Headache [Unknown]
  - Eye pain [Unknown]
